FAERS Safety Report 6027380-8 (Version None)
Quarter: 2009Q1

REPORT INFORMATION
  Report Type: 
  Country: None (occurrence: None)
  Receive Date: 20090105
  Receipt Date: 20081219
  Transmission Date: 20090719
  Serious: Yes (Hospitalization)
  Sender: FDA-Public Use
  Company Number: JP-PFIZER INC-2008096026

PATIENT

DRUGS (4)
  1. CELECOX [Suspect]
     Indication: OSTEOARTHRITIS
     Dosage: 100 MG, 1X/DAY
     Route: 048
     Dates: start: 20080712, end: 20080712
  2. GASLON [Concomitant]
     Indication: OSTEOARTHRITIS
     Dosage: 2 MG, 1X/DAY
     Route: 048
     Dates: start: 20080712, end: 20080712
  3. LOXONIN [Concomitant]
     Indication: OSTEOARTHRITIS
     Dosage: UNK, 1 DF
     Route: 048
     Dates: start: 20080709, end: 20080712
  4. MUCOSTA [Concomitant]
     Indication: OSTEOARTHRITIS
     Dosage: UNK, 1 DF
     Route: 048
     Dates: start: 20080709, end: 20080712

REACTIONS (1)
  - ACUTE GENERALISED EXANTHEMATOUS PUSTULOSIS [None]
